FAERS Safety Report 25385802 (Version 1)
Quarter: 2025Q2

REPORT INFORMATION
  Report Type: Spontaneous
  Country: US (occurrence: None)
  Receive Date: 20250530
  Receipt Date: 20250530
  Transmission Date: 20250716
  Serious: No
  Sender: FDA-CTU
  Company Number: None

PATIENT
  Age: 45 Year
  Sex: Female
  Weight: 108.8 kg

DRUGS (4)
  1. OZEMPIC [Suspect]
     Active Substance: SEMAGLUTIDE
     Indication: Type 2 diabetes mellitus
     Route: 058
  2. Ozempic 0.25 mg/dose and 0.5 mg/dose [Concomitant]
  3. Ozempic 1 mg/dose [Concomitant]
  4. Ozempic 2 mg/dose [Concomitant]

REACTIONS (1)
  - Swelling of eyelid [None]
